FAERS Safety Report 9258628 (Version 1)
Quarter: 2013Q2

REPORT INFORMATION
  Report Type: Spontaneous
  Country: US (occurrence: None)
  Receive Date: 20130425
  Receipt Date: 20130425
  Transmission Date: 20140414
  Serious: Yes (Life-Threatening, Hospitalization)
  Sender: FDA-Public Use
  Company Number: None

PATIENT
  Age: 74 Year
  Sex: Male
  Weight: 74.8 kg

DRUGS (2)
  1. PACLITAXEL [Suspect]
     Indication: LUNG ADENOCARCINOMA STAGE IV
     Dosage: 400MG/D5W 500ML Q21 DAYS, IV DRIP
     Route: 041
     Dates: start: 20130322, end: 20130422
  2. PACLITAXEL [Suspect]

REACTIONS (3)
  - Flushing [None]
  - Respiratory arrest [None]
  - Infusion related reaction [None]
